FAERS Safety Report 7443240-X (Version None)
Quarter: 2011Q2

REPORT INFORMATION
  Report Type: 
  Country: None (occurrence: None)
  Receive Date: 20110428
  Receipt Date: 20110420
  Transmission Date: 20111010
  Serious: Yes (Life-Threatening)
  Sender: FDA-Public Use
  Company Number: B0715039A

PATIENT
  Sex: Female
  Weight: 51 kg

DRUGS (5)
  1. VALTREX [Concomitant]
     Dosage: 1000MG PER DAY
     Route: 048
     Dates: start: 20080523, end: 20080609
  2. ZOFRAN [Concomitant]
     Dosage: 4MG PER DAY
     Route: 042
     Dates: start: 20080526, end: 20080526
  3. CRAVIT [Concomitant]
     Dosage: 300MG PER DAY
     Route: 042
     Dates: start: 20080523, end: 20080609
  4. ALKERAN [Suspect]
     Indication: STEM CELL TRANSPLANT
     Dosage: 200MGM2 PER DAY
     Route: 048
     Dates: start: 20080526, end: 20080526
  5. DIFLUCAN [Concomitant]
     Dosage: 200MG PER DAY
     Route: 048
     Dates: start: 20080523, end: 20080609

REACTIONS (1)
  - FEBRILE NEUTROPENIA [None]
